FAERS Safety Report 7531791-9 (Version None)
Quarter: 2011Q2

REPORT INFORMATION
  Report Type: 
  Country: None (occurrence: None)
  Receive Date: 20110601
  Receipt Date: 20110510
  Transmission Date: 20111010
  Serious: Yes (Hospitalization)
  Sender: FDA-Public Use
  Company Number: 1000021229

PATIENT
  Age: 46 Year
  Sex: Male

DRUGS (3)
  1. LEXAPRO [Suspect]
     Indication: PSYCHOPATHIC PERSONALITY
     Dosage: 10 MG (10 MG, 1 I N 1 D), ORAL
     Route: 048
  2. IRBESARTAN + HYDROCHLOROTHIAZIDE [Suspect]
     Indication: HYPERTENSION
     Dosage: 1 DF (1 DOSAGE FORMS, 1 I N1 D)
  3. QUETIAPINE FUMARATE [Suspect]
     Indication: DEPRESSION
     Dosage: 100 MG (100 MG, 1 IN 1 D)

REACTIONS (3)
  - HYPOTENSION [None]
  - FALL [None]
  - DRUG INTERACTION [None]
